FAERS Safety Report 7787854-6 (Version None)
Quarter: 2011Q3

REPORT INFORMATION
  Report Type: 
  Country: None (occurrence: None)
  Receive Date: 20110930
  Receipt Date: 20110926
  Transmission Date: 20111222
  Serious: No
  Sender: FDA-Public Use
  Company Number: US-BIOGENIDEC-2011BI007457

PATIENT
  Sex: Female

DRUGS (1)
  1. TYSABRI [Suspect]
     Indication: MULTIPLE SCLEROSIS
     Route: 042
     Dates: start: 20110121

REACTIONS (5)
  - ANKLE FRACTURE [None]
  - HEADACHE [None]
  - SOMNOLENCE [None]
  - FALL [None]
  - FATIGUE [None]
